FAERS Safety Report 5191004-2 (Version None)
Quarter: 2006Q4

REPORT INFORMATION
  Report Type: 
  Country: None (occurrence: None)
  Receive Date: 20061215
  Receipt Date: 20061130
  Transmission Date: 20070319
  Serious: Yes (Death)
  Sender: FDA-Public Use
  Company Number: 3578

PATIENT
  Age: 55 Year
  Sex: Female

DRUGS (1)
  1. AMNESTEEM [Suspect]
     Indication: ACNE
     Dosage: 20 MG, UKN, PO
     Route: 048
     Dates: start: 20060401, end: 20061101

REACTIONS (1)
  - DEATH [None]
